FAERS Safety Report 16400808 (Version 1)
Quarter: 2019Q2

REPORT INFORMATION
  Report Type: Spontaneous
  Country: US (occurrence: US)
  Receive Date: 20190606
  Receipt Date: 20190606
  Transmission Date: 20190711
  Serious: Yes (Hospitalization)
  Sender: FDA-Public Use
  Company Number: US-PFIZER INC-2019103115

PATIENT
  Age: 68 Year
  Sex: Male
  Weight: 104.3 kg

DRUGS (3)
  1. PREPARATION H COOLING GEL [Suspect]
     Active Substance: PHENYLEPHRINE HYDROCHLORIDE\WITCH HAZEL
     Indication: HAEMORRHOIDS
     Dosage: 10 MG, 2X/DAY
     Dates: start: 20190303, end: 2019
  2. PREPARATION H COOLING GEL [Suspect]
     Active Substance: PHENYLEPHRINE HYDROCHLORIDE\WITCH HAZEL
     Indication: BURNING SENSATION
  3. PREPARATION H COOLING GEL [Suspect]
     Active Substance: PHENYLEPHRINE HYDROCHLORIDE\WITCH HAZEL
     Indication: PROCTALGIA

REACTIONS (1)
  - Burning sensation [Recovered/Resolved]

NARRATIVE: CASE EVENT DATE: 20190303
